FAERS Safety Report 13547283 (Version 3)
Quarter: 2018Q3

REPORT INFORMATION
  Report Type: Spontaneous
  Country: US (occurrence: US)
  Receive Date: 20170515
  Receipt Date: 20180913
  Transmission Date: 20181010
  Serious: No
  Sender: FDA-Public Use
  Company Number: US-ACTELION-A-US2017-153797

PATIENT
  Age: 62 Year
  Sex: Female
  Weight: 50.79 kg

DRUGS (1)
  1. OPSUMIT [Suspect]
     Active Substance: MACITENTAN
     Indication: PULMONARY ARTERIAL HYPERTENSION
     Dosage: 10 MG, QD
     Route: 048
     Dates: start: 20170331

REACTIONS (3)
  - Joint swelling [Unknown]
  - Inappropriate schedule of drug administration [Unknown]
  - Arthralgia [Not Recovered/Not Resolved]
